FAERS Safety Report 4677962-0 (Version None)
Quarter: 2005Q1

REPORT INFORMATION
  Report Type: 
  Country: None (occurrence: None)
  Receive Date: 20041001
  Receipt Date: 20041001
  Transmission Date: 20050727
  Serious: Yes (Other)
  Sender: FDA-Public Use
  Company Number: None

PATIENT
  Age: 72 Year
  Sex: Male
  Weight: 97.977 kg

DRUGS (1)
  1. GLIPIZIDE [Suspect]
     Dosage: 5 MG DAILY
     Dates: start: 20040927

REACTIONS (2)
  - SENSATION OF FOREIGN BODY [None]
  - THROAT TIGHTNESS [None]
